FAERS Safety Report 7508625-1 (Version None)
Quarter: 2011Q2

REPORT INFORMATION
  Report Type: 
  Country: None (occurrence: None)
  Receive Date: 20110527
  Receipt Date: 20110316
  Transmission Date: 20111010
  Serious: No
  Sender: FDA-Public Use
  Company Number: A0919476A

PATIENT
  Age: 75 Year
  Sex: Male
  Weight: 93.4 kg

DRUGS (1)
  1. FLOLAN [Suspect]
     Dosage: 6NGKM UNKNOWN
     Route: 065
     Dates: start: 20090805

REACTIONS (1)
  - URINARY TRACT INFECTION [None]
